FAERS Safety Report 11329414 (Version 1)
Quarter: 2015Q3

REPORT INFORMATION
  Report Type: Spontaneous
  Country: FR (occurrence: FR)
  Receive Date: 20150803
  Receipt Date: 20150803
  Transmission Date: 20151125
  Serious: Yes (Other)
  Sender: FDA-Public Use
  Company Number: FR-PFIZER INC-2015036246

PATIENT
  Age: 33 Year
  Sex: Male

DRUGS (6)
  1. LIORESAL [Concomitant]
     Active Substance: BACLOFEN
     Dosage: UNK
     Dates: start: 2013
  2. RIVOTRIL [Concomitant]
     Active Substance: CLONAZEPAM
     Dosage: UNK
     Dates: start: 2010
  3. NEURONTIN [Suspect]
     Active Substance: GABAPENTIN
     Indication: FIBROMYALGIA
     Dosage: 1200 MG, 3X/DAY
     Dates: start: 2009, end: 20141012
  4. IBUPROFEN. [Concomitant]
     Active Substance: IBUPROFEN
     Dosage: UNK
     Dates: start: 2007
  5. NEURONTIN [Suspect]
     Active Substance: GABAPENTIN
     Dosage: STRENGTH 800 MG
  6. NOCERTONE [Concomitant]
     Active Substance: OXETORONE
     Dosage: UNK
     Dates: start: 2010

REACTIONS (6)
  - Back pain [Not Recovered/Not Resolved]
  - Abasia [Not Recovered/Not Resolved]
  - Cerebral disorder [Unknown]
  - Dysstasia [Not Recovered/Not Resolved]
  - Back disorder [Not Recovered/Not Resolved]
  - Myalgia [Not Recovered/Not Resolved]

NARRATIVE: CASE EVENT DATE: 20140924
